FAERS Safety Report 7444504-6 (Version None)
Quarter: 2011Q2

REPORT INFORMATION
  Report Type: 
  Country: None (occurrence: None)
  Receive Date: 20110427
  Receipt Date: 20110427
  Transmission Date: 20111010
  Serious: Yes (Death, Life-Threatening)
  Sender: FDA-Public Use
  Company Number: None

PATIENT
  Sex: Male
  Weight: 69 kg

DRUGS (2)
  1. DIAZEPAM [Suspect]
     Dosage: PRN PO
     Route: 048
  2. CLOPIDOGREL [Suspect]
     Indication: CEREBROVASCULAR ACCIDENT
     Dosage: 75MG DAILY PO
     Route: 048

REACTIONS (6)
  - SUBDURAL HAEMORRHAGE [None]
  - FALL [None]
  - PULSE ABSENT [None]
  - APNOEA [None]
  - DIZZINESS [None]
  - BALANCE DISORDER [None]
